FAERS Safety Report 25562519 (Version 1)
Quarter: 2025Q3

REPORT INFORMATION
  Report Type: Spontaneous
  Country: US (occurrence: US)
  Receive Date: 20250716
  Receipt Date: 20250716
  Transmission Date: 20251021
  Serious: Yes (Hospitalization, Other)
  Sender: CHURCH & DWIGHT
  Company Number: US-CHURCH AND DWIGHT CO., INC-2025-CDW-00926

PATIENT
  Age: 35 Year
  Sex: Male

DRUGS (1)
  1. ZICAM COLD REMEDY NASAL SWABS (HOMEOPATHICS) [Suspect]
     Active Substance: HOMEOPATHICS\ZINC ACETATE\ZINC GLUCONATE
     Indication: Nasopharyngitis
     Dosage: ONCE A DAY, ONE SWAB, AS DIRECTED
     Route: 045
     Dates: start: 20250204, end: 20250209

REACTIONS (10)
  - Rhinorrhoea [Recovered/Resolved with Sequelae]
  - Oropharyngeal pain [Recovered/Resolved with Sequelae]
  - Chills [Recovered/Resolved with Sequelae]
  - Headache [Not Recovered/Not Resolved]
  - Vomiting [Recovered/Resolved with Sequelae]
  - Vertigo [Recovered/Resolved with Sequelae]
  - Dysstasia [Recovered/Resolved with Sequelae]
  - Eye injury [Recovered/Resolved with Sequelae]
  - Meningitis [Recovered/Resolved with Sequelae]
  - Speech disorder [Recovered/Resolved with Sequelae]

NARRATIVE: CASE EVENT DATE: 20250209
